FAERS Safety Report 8099609-6 (Version None)
Quarter: 2012Q1

REPORT INFORMATION
  Report Type: 
  Country: None (occurrence: None)
  Receive Date: 20120131
  Receipt Date: 20120118
  Transmission Date: 20120608
  Serious: Yes (Other)
  Sender: FDA-Public Use
  Company Number: GB-PFIZER INC-2012014995

PATIENT
  Age: 64 Year
  Sex: Male

DRUGS (8)
  1. RAMIPRIL [Suspect]
     Indication: HYPERTENSION
     Dosage: 5 MG, 1X/DAY
     Route: 048
     Dates: start: 20111212, end: 20120105
  2. NAPROXEN [Concomitant]
     Dosage: UNK
     Route: 065
  3. ALLOPURINOL [Concomitant]
     Dosage: UNK
     Route: 065
  4. BISACODYL [Concomitant]
     Dosage: UNK
     Route: 065
  5. COLCHICINE [Concomitant]
     Dosage: UNK
     Route: 065
  6. LISINOPRIL [Concomitant]
     Dosage: UNK
     Route: 065
  7. ACETYLSALICYLIC ACID [Concomitant]
     Dosage: UNK
     Route: 065
  8. OMEPRAZOLE [Concomitant]
     Dosage: UNK
     Route: 065

REACTIONS (1)
  - GOUT [None]
